FAERS Safety Report 9200988 (Version 1)
Quarter: 2013Q2

REPORT INFORMATION
  Report Type: Spontaneous
  Country: FR (occurrence: FR)
  Receive Date: 20130401
  Receipt Date: 20130401
  Transmission Date: 20140414
  Serious: Yes (Hospitalization)
  Sender: FDA-Public Use
  Company Number: FR-JNJFOC-20130311858

PATIENT
  Age: 23 Year
  Sex: Male

DRUGS (2)
  1. RISPERDAL [Suspect]
     Indication: PRODUCT USED FOR UNKNOWN INDICATION
     Route: 048
     Dates: start: 20130201, end: 20130207
  2. VALIUM [Concomitant]
     Route: 048
     Dates: start: 20130201

REACTIONS (2)
  - Rhabdomyolysis [Not Recovered/Not Resolved]
  - Renal failure acute [Not Recovered/Not Resolved]
